FAERS Safety Report 8317828-8 (Version None)
Quarter: 2012Q2

REPORT INFORMATION
  Report Type: 
  Country: None (occurrence: None)
  Receive Date: 20120427
  Receipt Date: 20120418
  Transmission Date: 20120825
  Serious: Yes (Hospitalization, Other)
  Sender: FDA-Public Use
  Company Number: JP-JNJFOC-20120105629

PATIENT
  Sex: Female

DRUGS (12)
  1. MORPHINE HYDROCHLORIDE [Concomitant]
     Indication: PAIN
     Route: 048
     Dates: start: 20111118, end: 20111206
  2. TIZANIDINE HCL [Concomitant]
     Indication: PRODUCT USED FOR UNKNOWN INDICATION
     Route: 048
  3. ZOLOFT [Concomitant]
     Indication: PRODUCT USED FOR UNKNOWN INDICATION
     Route: 048
  4. PURSENNID [Concomitant]
     Indication: PROPHYLAXIS
     Route: 048
  5. FENTANYL-100 [Suspect]
     Indication: PAIN
     Route: 062
     Dates: start: 20111206, end: 20111209
  6. PRAMIPEXOLE DIHYDROCHLORIDE [Concomitant]
     Indication: PRODUCT USED FOR UNKNOWN INDICATION
     Route: 048
  7. MENEST [Concomitant]
     Indication: PRODUCT USED FOR UNKNOWN INDICATION
     Route: 048
  8. MAGMITT [Concomitant]
     Indication: PROPHYLAXIS
     Route: 048
  9. MEPIVACAINE HCL [Concomitant]
     Indication: PAIN
     Route: 065
     Dates: start: 20111130, end: 20111205
  10. QUETIAPINE FUMARATE [Concomitant]
     Indication: INSOMNIA
     Route: 048
     Dates: start: 20111125, end: 20111214
  11. SYMMETREL [Concomitant]
     Indication: PRODUCT USED FOR UNKNOWN INDICATION
     Route: 048
  12. QUETIAPINE FUMARATE [Concomitant]
     Indication: DEPRESSION
     Route: 048
     Dates: start: 20111125, end: 20111214

REACTIONS (2)
  - LACUNAR INFARCTION [None]
  - DELIRIUM [None]
